FAERS Safety Report 25829035 (Version 1)
Quarter: 2025Q3

REPORT INFORMATION
  Report Type: Spontaneous
  Country: US (occurrence: US)
  Receive Date: 20250922
  Receipt Date: 20250922
  Transmission Date: 20251021
  Serious: Yes (Hospitalization)
  Sender: BRISTOL-MYERS SQUIBB COMPANY
  Company Number: US-BRISTOL-MYERS SQUIBB COMPANY-2025-129361

PATIENT
  Age: 78 Year
  Sex: Female

DRUGS (1)
  1. REVLIMID [Suspect]
     Active Substance: LENALIDOMIDE
     Indication: Product used for unknown indication
     Dosage: DAILY FOR 21 DAYS THEN 7 DAYS OFF

REACTIONS (5)
  - Fall [Unknown]
  - Head injury [Unknown]
  - Peripheral swelling [Unknown]
  - Urinary tract infection [Unknown]
  - Arthritis [Unknown]

NARRATIVE: CASE EVENT DATE: 20250914
